FAERS Safety Report 7558935-7 (Version None)
Quarter: 2011Q2

REPORT INFORMATION
  Report Type: 
  Country: None (occurrence: None)
  Receive Date: 20110621
  Receipt Date: 20110614
  Transmission Date: 20111010
  Serious: Yes (Hospitalization)
  Sender: FDA-Public Use
  Company Number: US-JNJFOC-20110607679

PATIENT
  Sex: Female

DRUGS (3)
  1. OXYCODONE HCL [Concomitant]
     Route: 048
     Dates: start: 20110101
  2. FENTANYL [Suspect]
     Indication: BACK PAIN
     Route: 062
  3. OXYCODONE HCL [Concomitant]
     Indication: PAIN
     Route: 048
     Dates: end: 20110101

REACTIONS (6)
  - CLAVICLE FRACTURE [None]
  - CONTUSION [None]
  - RIB FRACTURE [None]
  - ANKLE FRACTURE [None]
  - ROAD TRAFFIC ACCIDENT [None]
  - IRON DEFICIENCY [None]
